FAERS Safety Report 7498610-0 (Version None)
Quarter: 2011Q2

REPORT INFORMATION
  Report Type: 
  Country: None (occurrence: None)
  Receive Date: 20110524
  Receipt Date: 20110428
  Transmission Date: 20111010
  Serious: Yes (Hospitalization, Other)
  Sender: FDA-Public Use
  Company Number: US-BAYER-201030781NA

PATIENT
  Age: 28 Year
  Sex: Female
  Weight: 57.143 kg

DRUGS (4)
  1. YASMIN [Suspect]
     Indication: DYSMENORRHOEA
     Dosage: UNK
     Route: 048
     Dates: start: 20070301, end: 20070801
  2. YAZ [Suspect]
     Indication: MENSTRUATION IRREGULAR
  3. YASMIN [Suspect]
     Indication: MENSTRUATION IRREGULAR
  4. YAZ [Suspect]
     Indication: DYSMENORRHOEA
     Dosage: UNK
     Route: 048
     Dates: start: 20070301, end: 20070801

REACTIONS (10)
  - DEPRESSION [None]
  - CORONARY ARTERY OCCLUSION [None]
  - PANCREATITIS [None]
  - ANXIETY [None]
  - DYSPNOEA [None]
  - VOMITING [None]
  - NAUSEA [None]
  - MYOCARDIAL INFARCTION [None]
  - CHEST PAIN [None]
  - HYPERHIDROSIS [None]
